FAERS Safety Report 26199816 (Version 1)
Quarter: 2025Q4

REPORT INFORMATION
  Report Type: Spontaneous
  Country: US (occurrence: US)
  Receive Date: 20251225
  Receipt Date: 20251225
  Transmission Date: 20260117
  Serious: No
  Sender: DR REDDYS
  Company Number: None

PATIENT
  Age: 52 Year
  Sex: Female

DRUGS (3)
  1. LEVOTHYROXINE [Suspect]
     Active Substance: LEVOTHYROXINE
     Indication: Product used for unknown indication
  2. SODIUM LAURYL SULFATE [Suspect]
     Active Substance: SODIUM LAURYL SULFATE
     Indication: Product used for unknown indication
  3. BUTYLATED HYDROXYANISOLE [Suspect]
     Active Substance: BUTYLATED HYDROXYANISOLE
     Indication: Product used for unknown indication

REACTIONS (2)
  - Gingival bleeding [Recovered/Resolved]
  - Reaction to excipient [Recovered/Resolved]
